FAERS Safety Report 5496086-6 (Version None)
Quarter: 2007Q4

REPORT INFORMATION
  Report Type: 
  Country: None (occurrence: None)
  Receive Date: 20071025
  Receipt Date: 20070123
  Transmission Date: 20080405
  Serious: No
  Sender: FDA-Public Use
  Company Number: A0636699A

PATIENT
  Age: 86 Year
  Sex: Female

DRUGS (5)
  1. ADVAIR DISKUS 100/50 [Suspect]
     Indication: CHRONIC OBSTRUCTIVE PULMONARY DISEASE
     Dosage: 1PUFF TWICE PER DAY
     Route: 055
  2. ZETIA [Concomitant]
  3. BLOOD PRESSURE MEDICATION [Concomitant]
  4. SYNTHROID [Concomitant]
  5. ACIPHEX [Concomitant]

REACTIONS (4)
  - PERIPHERAL SENSORY NEUROPATHY [None]
  - SENSORY DISTURBANCE [None]
  - TOOTH DISCOLOURATION [None]
  - TREMOR [None]
